FAERS Safety Report 23843244 (Version 2)
Quarter: 2024Q2

REPORT INFORMATION
  Report Type: Spontaneous
  Country: CA (occurrence: CA)
  Receive Date: 20240510
  Receipt Date: 20240511
  Transmission Date: 20240716
  Serious: Yes (Death, Hospitalization, Other)
  Sender: FDA-Public Use
  Company Number: CA-TEVA-VS-3197105

PATIENT
  Age: 39 Year
  Sex: Female

DRUGS (3)
  1. LAMOTRIGINE [Suspect]
     Active Substance: LAMOTRIGINE
     Indication: Epilepsy
     Route: 065
  2. LAMOTRIGINE [Suspect]
     Active Substance: LAMOTRIGINE
     Indication: Epilepsy
     Route: 065
  3. LAMOTRIGINE [Suspect]
     Active Substance: LAMOTRIGINE
     Indication: Epilepsy
     Route: 065

REACTIONS (6)
  - Cardiac arrest [Fatal]
  - Cardiac failure [Fatal]
  - Drug reaction with eosinophilia and systemic symptoms [Fatal]
  - Eosinophilic myocarditis [Fatal]
  - Hepatic necrosis [Fatal]
  - Thyroiditis [Fatal]
